FAERS Safety Report 23784210 (Version 2)
Quarter: 2024Q2

REPORT INFORMATION
  Report Type: Spontaneous
  Country: CA (occurrence: CA)
  Receive Date: 20240425
  Receipt Date: 20240603
  Transmission Date: 20240716
  Serious: Yes (Death)
  Sender: FDA-Public Use
  Company Number: CA-TEVA-VS-3188734

PATIENT
  Age: 91 Year
  Sex: Male

DRUGS (19)
  1. PREDNISONE [Suspect]
     Active Substance: PREDNISONE
     Indication: Prostate cancer metastatic
     Route: 065
  2. PREDNISONE [Suspect]
     Active Substance: PREDNISONE
     Indication: Prostate cancer metastatic
     Route: 065
  3. ZYTIGA [Suspect]
     Active Substance: ABIRATERONE ACETATE
     Indication: Prostate cancer metastatic
     Route: 048
  4. ABIRATERONE ACETATE [Suspect]
     Active Substance: ABIRATERONE ACETATE
     Indication: Prostate cancer metastatic
     Route: 048
  5. LEUPROLIDE ACETATE [Suspect]
     Active Substance: ISOPROPYL ALCOHOL\LEUPROLIDE ACETATE
     Indication: Prostate cancer metastatic
     Route: 065
  6. NAPROXEN SODIUM [Concomitant]
     Active Substance: NAPROXEN\NAPROXEN SODIUM
     Indication: Product used for unknown indication
     Route: 065
  7. TRAMADOL [Concomitant]
     Active Substance: TRAMADOL\TRAMADOL HYDROCHLORIDE
     Indication: Product used for unknown indication
     Dosage: HYDROCHLORIDE
     Route: 065
  8. CALCIUM\CHOLECALCIFEROL [Concomitant]
     Active Substance: CALCIUM\CHOLECALCIFEROL
     Indication: Product used for unknown indication
     Route: 065
  9. DENOSUMAB [Suspect]
     Active Substance: DENOSUMAB
     Indication: Prostate cancer metastatic
     Dosage: DOSAGE FORM:SOLUTION SUBCUTANEOUS
     Route: 065
  10. DENOSUMAB [Suspect]
     Active Substance: DENOSUMAB
     Indication: Prostate cancer metastatic
     Dosage: DOSAGE FORM:SOLUTION SUBCUTANEOUS
     Route: 065
  11. DEXAMETHASONE [Suspect]
     Active Substance: DEXAMETHASONE
     Indication: Prostate cancer metastatic
     Dosage: DOSAGE FORM: NOT SPECIFIED.
     Route: 065
  12. ERGOCALCIFEROL [Concomitant]
     Active Substance: ERGOCALCIFEROL
     Indication: Product used for unknown indication
     Route: 065
  13. FIRMAGON [Suspect]
     Active Substance: DEGARELIX ACETATE
     Indication: Prostate cancer metastatic
     Dosage: DOSE FORM: POWDER FOR SOLUTION SUBCUTANEOUS
     Route: 065
  14. FIRMAGON [Suspect]
     Active Substance: DEGARELIX ACETATE
     Indication: Prostate cancer metastatic
     Dosage: DOSE FORM: POWDER FOR SOLUTION SUBCUTANEOUS
     Route: 065
  15. FLAGYL [Concomitant]
     Active Substance: METRONIDAZOLE\METRONIDAZOLE HYDROCHLORIDE
     Indication: Product used for unknown indication
     Route: 065
  16. FLAGYL [Concomitant]
     Active Substance: METRONIDAZOLE\METRONIDAZOLE HYDROCHLORIDE
     Indication: Product used for unknown indication
     Route: 065
  17. KEFLEX [Concomitant]
     Active Substance: CEPHALEXIN
     Indication: Product used for unknown indication
     Route: 065
  18. KEFLEX [Concomitant]
     Active Substance: CEPHALEXIN
     Indication: Product used for unknown indication
     Route: 065
  19. ELIGARD [Suspect]
     Active Substance: LEUPROLIDE ACETATE
     Indication: Prostate cancer metastatic
     Dosage: DOSE FORM : POWDER FORSUSPENSION,SUSTAINEDRELEASE
     Route: 065

REACTIONS (1)
  - Prostate cancer metastatic [Fatal]
